FAERS Safety Report 12497473 (Version 2)
Quarter: 2016Q3

REPORT INFORMATION
  Report Type: Spontaneous
  Country: BR (occurrence: BR)
  Receive Date: 20160624
  Receipt Date: 20160812
  Transmission Date: 20161109
  Serious: Yes (Other)
  Sender: FDA-Public Use
  Company Number: BR-ASTRAZENECA-2016SE68201

PATIENT
  Age: 72 Year
  Sex: Female
  Weight: 52.5 kg

DRUGS (5)
  1. OSCAL D [Concomitant]
     Active Substance: CALCIUM CARBONATE\CHOLECALCIFEROL
     Indication: OSTEOPENIA
  2. PLENANCE [Interacting]
     Active Substance: ROSUVASTATIN
     Indication: BLOOD CHOLESTEROL ABNORMAL
     Route: 048
     Dates: end: 201606
  3. SYNTHROID [Interacting]
     Active Substance: LEVOTHYROXINE SODIUM
     Indication: THYROID DISORDER
     Route: 065
     Dates: end: 201606
  4. SELOZOK [Suspect]
     Active Substance: METOPROLOL SUCCINATE
     Indication: HEART RATE IRREGULAR
     Route: 048
     Dates: start: 201510, end: 201606
  5. HYPERICUM PERFURATUM [Interacting]
     Active Substance: HYPERICUM PERFORATUM
     Indication: SLEEP DISORDER
     Route: 065
     Dates: end: 201606

REACTIONS (3)
  - Liver function test abnormal [Recovered/Resolved]
  - Drug interaction [Not Recovered/Not Resolved]
  - Osteopenia [Recovering/Resolving]

NARRATIVE: CASE EVENT DATE: 2016
